FAERS Safety Report 8312177-6 (Version None)
Quarter: 2012Q2

REPORT INFORMATION
  Report Type: 
  Country: None (occurrence: None)
  Receive Date: 20120425
  Receipt Date: 20120418
  Transmission Date: 20120825
  Serious: No
  Sender: FDA-Public Use
  Company Number: US-PFIZER INC-2012096378

PATIENT
  Sex: Female
  Weight: 81.633 kg

DRUGS (8)
  1. OMEPRAZOLE [Concomitant]
     Indication: GASTROOESOPHAGEAL REFLUX DISEASE
     Dosage: UNK
  2. ZYRTEC [Concomitant]
     Indication: HYPERSENSITIVITY
     Dosage: 20 MG, AS NEEDED
  3. DICYCLOMINE [Concomitant]
     Indication: GASTRIC DISORDER
     Dosage: 10 MG, 2X/DAY
  4. DICYCLOMINE [Concomitant]
     Indication: GASTROOESOPHAGEAL REFLUX DISEASE
  5. CELEBREX [Suspect]
     Indication: ARTHRITIS
     Dosage: 200 MG, DAILY
     Route: 048
     Dates: start: 20120417
  6. ZYRTEC [Concomitant]
     Indication: SEASONAL ALLERGY
  7. XANAX [Concomitant]
     Indication: MUSCLE SPASMS
     Dosage: 10 MG, 2X/DAY
  8. XANAX [Concomitant]
     Indication: OESOPHAGEAL SPASM

REACTIONS (4)
  - FLUSHING [None]
  - PYREXIA [None]
  - BLISTER [None]
  - ERYTHEMA [None]
